FAERS Safety Report 13271754 (Version 1)
Quarter: 2017Q1

REPORT INFORMATION
  Report Type: Not Available
  Country: US (occurrence: US)
  Receive Date: 20170227
  Receipt Date: 20170227
  Transmission Date: 20170428
  Serious: Yes (Congenital Anomaly)
  Sender: FDA-Public Use
  Company Number: US--2017-US-000002

PATIENT
  Age: 35 Week
  Sex: Male

DRUGS (1)
  1. METRONIDAZOLE BRAND UNSPECIFIED (VIVIMED) [Suspect]
     Active Substance: METRONIDAZOLE
     Indication: PRODUCT USED FOR UNKNOWN INDICATION
     Route: 015

REACTIONS (5)
  - Failure to thrive [Recovered/Resolved]
  - Bradycardia [Recovered/Resolved]
  - Hypothermia neonatal [Recovered/Resolved]
  - Toxicity to various agents [Recovered/Resolved]
  - Decreased activity [Recovered/Resolved]
